FAERS Safety Report 6516598-3 (Version None)
Quarter: 2009Q4

REPORT INFORMATION
  Report Type: 
  Country: None (occurrence: None)
  Receive Date: 20091223
  Receipt Date: 20091217
  Transmission Date: 20100525
  Serious: Yes (Other)
  Sender: FDA-Public Use
  Company Number: US-AMGEN-KDL378385

PATIENT
  Sex: Female
  Weight: 69 kg

DRUGS (8)
  1. PROCRIT [Suspect]
     Indication: DIALYSIS
     Route: 042
     Dates: start: 20000101
  2. CARVEDILOL [Concomitant]
  3. INSULIN [Concomitant]
  4. LISINOPRIL [Concomitant]
  5. MINOXIDIL [Concomitant]
  6. OMEPRAZOLE [Concomitant]
  7. PREDNISONE [Concomitant]
  8. SIMVASTATIN [Concomitant]

REACTIONS (1)
  - THERAPEUTIC RESPONSE DECREASED [None]
